FAERS Safety Report 23553519 (Version 1)
Quarter: 2024Q1

REPORT INFORMATION
  Report Type: Spontaneous
  Country: US (occurrence: US)
  Receive Date: 20240222
  Receipt Date: 20240222
  Transmission Date: 20240410
  Serious: No
  Sender: FDA-Public Use
  Company Number: US-BRISTOL-MYERS SQUIBB COMPANY-2024-029032

PATIENT
  Age: 69 Year
  Sex: Female
  Weight: 47.17 kg

DRUGS (1)
  1. REVLIMID [Suspect]
     Active Substance: LENALIDOMIDE
     Indication: Plasma cell myeloma
     Dosage: 21D OF 28D
     Route: 048
     Dates: start: 20221001

REACTIONS (2)
  - Skin ulcer [Recovering/Resolving]
  - Haemoglobin decreased [Recovering/Resolving]
